FAERS Safety Report 11060773 (Version 1)
Quarter: 2015Q2

REPORT INFORMATION
  Report Type: Spontaneous
  Country: DE (occurrence: DE)
  Receive Date: 20150423
  Receipt Date: 20150423
  Transmission Date: 20150821
  Serious: Yes (Congenital Anomaly)
  Sender: FDA-Public Use
  Company Number: GXKR2015DE002134

PATIENT

DRUGS (6)
  1. CALCIUM [Concomitant]
     Active Substance: CALCIUM
     Indication: OSTEOPOROSIS
     Dosage: 1000 [MG/D AS NEEDED ]
     Route: 064
     Dates: start: 20140127, end: 20141018
  2. METFORMIN [Suspect]
     Active Substance: METFORMIN HYDROCHLORIDE
     Indication: POLYCYSTIC OVARIES
     Dosage: 1000 [MG/D (0-0-1) ]
     Route: 064
  3. FORSTEO [Concomitant]
     Active Substance: TERIPARATIDE
     Indication: OSTEOPOROSIS
     Dosage: 20 [?G/D ]
     Route: 064
     Dates: start: 20140127, end: 20140223
  4. ARIXTRA [Concomitant]
     Active Substance: FONDAPARINUX SODIUM
     Indication: FACTOR V LEIDEN MUTATION
     Route: 064
  5. VITAMIN D [Concomitant]
     Active Substance: CHOLECALCIFEROL
     Indication: OSTEOPOROSIS
     Dosage: 2000 [IE/D ]
     Route: 064
     Dates: start: 20140127, end: 20141018
  6. FOLIO FORTE [Concomitant]
     Active Substance: FOLIC ACID\VITAMINS
     Indication: PROPHYLAXIS OF NEURAL TUBE DEFECT
     Dosage: 0.4 TO 0.8 [MG/D)
     Route: 064
     Dates: start: 20140127, end: 20141018

REACTIONS (1)
  - Talipes [Recovered/Resolved with Sequelae]

NARRATIVE: CASE EVENT DATE: 20141018
